FAERS Safety Report 7229815-1 (Version None)
Quarter: 2011Q1

REPORT INFORMATION
  Report Type: 
  Country: None (occurrence: None)
  Receive Date: 20110117
  Receipt Date: 20110111
  Transmission Date: 20110831
  Serious: Yes (Disabling)
  Sender: FDA-Public Use
  Company Number: FR-ALLERGAN-1100368US

PATIENT
  Age: 60 Year
  Sex: Male

DRUGS (8)
  1. FORADIL [Concomitant]
     Indication: PRODUCT USED FOR UNKNOWN INDICATION
  2. TEGRETOL [Concomitant]
  3. BOTOX [Suspect]
     Indication: MUSCLE SPASTICITY
     Dosage: 400 UNITS, SINGLE Q 6 MONTHS
     Route: 030
     Dates: start: 20100427, end: 20100427
  4. DYSPORT [Suspect]
     Indication: MUSCLE SPASTICITY
     Dosage: 1000 UNITS, SINGLE
     Dates: start: 20101126, end: 20101126
  5. DAFALGAN [Concomitant]
     Indication: PRODUCT USED FOR UNKNOWN INDICATION
  6. TRANSIPEG [Concomitant]
     Indication: PRODUCT USED FOR UNKNOWN INDICATION
  7. MAGNE B6 [Concomitant]
     Indication: PRODUCT USED FOR UNKNOWN INDICATION
  8. BACLOFEN [Concomitant]
     Indication: PRODUCT USED FOR UNKNOWN INDICATION

REACTIONS (1)
  - ERECTILE DYSFUNCTION [None]
